FAERS Safety Report 11619107 (Version 1)
Quarter: 2015Q4

REPORT INFORMATION
  Report Type: Spontaneous
  Country: US (occurrence: US)
  Receive Date: 20151012
  Receipt Date: 20151012
  Transmission Date: 20160304
  Serious: Yes (Other)
  Sender: FDA-Public Use
  Company Number: US-GLAXOSMITHKLINE-US2015GSK135459

PATIENT
  Sex: Male

DRUGS (5)
  1. LAMICTAL [Suspect]
     Active Substance: LAMOTRIGINE
  2. VIMPAT [Suspect]
     Active Substance: LACOSAMIDE
  3. ONFI [Suspect]
     Active Substance: CLOBAZAM
  4. KEPPRA [Suspect]
     Active Substance: LEVETIRACETAM
  5. TROKENDI [Suspect]
     Active Substance: TOPIRAMATE

REACTIONS (3)
  - Seizure [Unknown]
  - Brain operation [Unknown]
  - Surgery [Unknown]
